FAERS Safety Report 15675529 (Version 2)
Quarter: 2019Q2

REPORT INFORMATION
  Report Type: Spontaneous
  Country: PT (occurrence: PT)
  Receive Date: 20181130
  Receipt Date: 20190618
  Transmission Date: 20190711
  Serious: Yes (Life-Threatening, Hospitalization)
  Sender: FDA-Public Use
  Company Number: PT-TEVA-2018-PT-980770

PATIENT
  Age: 69 Year
  Sex: Male

DRUGS (2)
  1. SIMVASTATIN. [Concomitant]
     Active Substance: SIMVASTATIN
  2. BISOPROLOL [Suspect]
     Active Substance: BISOPROLOL
     Indication: EXTRASYSTOLES
     Dosage: 1.25 MILLIGRAM DAILY;
     Route: 048
     Dates: start: 20180501, end: 20181104

REACTIONS (2)
  - Atrioventricular block complete [Unknown]
  - Syncope [Unknown]

NARRATIVE: CASE EVENT DATE: 20181101
